FAERS Safety Report 14537916 (Version 1)
Quarter: 2018Q1

REPORT INFORMATION
  Report Type: Spontaneous
  Country: US (occurrence: US)
  Receive Date: 20180216
  Receipt Date: 20180216
  Transmission Date: 20180509
  Serious: Yes (Death, Life-Threatening, Hospitalization, Other)
  Sender: FDA-Public Use
  Company Number: US-MACLEODS PHARMACEUTICALS US LTD-MAC2018010032

PATIENT

DRUGS (1)
  1. AMLODIPINE BESYLATE 10MG TABLET [Suspect]
     Active Substance: AMLODIPINE BESYLATE
     Indication: SUICIDE ATTEMPT
     Dosage: 50 DF, SINGLE, 50 10 MG TABLETS OF AMLODIPINE (TOTAL OF 500 MG), OVERDOSE
     Route: 048

REACTIONS (12)
  - Cardiac failure [Fatal]
  - Multiple organ dysfunction syndrome [Fatal]
  - Pulmonary oedema [Fatal]
  - Acidosis [Fatal]
  - Pupillary reflex impaired [Fatal]
  - Peripheral coldness [Fatal]
  - Rhonchi [Fatal]
  - Rales [Fatal]
  - Intentional overdose [Fatal]
  - Condition aggravated [Fatal]
  - Peripheral ischaemia [Unknown]
  - Toxicity to various agents [Fatal]
